FAERS Safety Report 9108207 (Version 1)
Quarter: 2013Q1

REPORT INFORMATION
  Report Type: Spontaneous
  Country: IN (occurrence: IN)
  Receive Date: 20130221
  Receipt Date: 20130221
  Transmission Date: 20140127
  Serious: Yes (Hospitalization)
  Sender: FDA-Public Use
  Company Number: IN-009507513-1302IND008005

PATIENT
  Age: 48 Year
  Sex: Male

DRUGS (2)
  1. VIRAFERONPEG [Suspect]
     Dosage: 50 MICROGRAM, QW, 18 INJECTIONS IN TOTAL
  2. REBETOL [Suspect]
     Route: 048

REACTIONS (8)
  - Hepatic function abnormal [Unknown]
  - Blood count abnormal [Unknown]
  - Pyrexia [Unknown]
  - Dry mouth [Unknown]
  - Aphthous stomatitis [Unknown]
  - Proctalgia [Unknown]
  - Blood count abnormal [Unknown]
  - Pyrexia [Unknown]
